FAERS Safety Report 13476554 (Version 1)
Quarter: 2017Q2

REPORT INFORMATION
  Report Type: Spontaneous
  Country: US (occurrence: US)
  Receive Date: 20170424
  Receipt Date: 20170424
  Transmission Date: 20170830
  Serious: No
  Sender: FDA-Public Use
  Company Number: US-ABBVIE-17P-163-1867463-00

PATIENT
  Sex: Female

DRUGS (1)
  1. LUPRON DEPOT-PED [Suspect]
     Active Substance: LEUPROLIDE ACETATE
     Indication: GROWTH RETARDATION
     Route: 058

REACTIONS (5)
  - Pain [Unknown]
  - Intervertebral disc degeneration [Unknown]
  - Polycystic ovaries [Unknown]
  - Bursitis [Unknown]
  - Depression [Unknown]
